FAERS Safety Report 10398353 (Version 2)
Quarter: 2014Q3

REPORT INFORMATION
  Report Type: Spontaneous
  Country: US (occurrence: None)
  Receive Date: 20130815
  Receipt Date: 20140815
  Transmission Date: 20150326
  Serious: Yes (Other)
  Sender: FDA-Public Use
  Company Number: ADR-2012-00789

PATIENT
  Age: 49 Year
  Sex: Male

DRUGS (6)
  1. BUPIVACAINE INTRATHECAL [Suspect]
     Active Substance: BUPIVACAINE
  2. FENTANYL INTRATHECAL [Suspect]
     Active Substance: FENTANYL
  3. BACLOFEN INTRATHECAL (BACLOFEN INJECTION) [Suspect]
     Active Substance: BACLOFEN
     Indication: PAIN
  4. CLONIDINE. [Concomitant]
     Active Substance: CLONIDINE
  5. CLONIDINE. [Suspect]
     Active Substance: CLONIDINE
  6. BUPIVACAINE [Concomitant]
     Active Substance: BUPIVACAINE

REACTIONS (6)
  - Malaise [None]
  - Pain [None]
  - Drug withdrawal syndrome [None]
  - Unevaluable event [None]
  - Abasia [None]
  - No therapeutic response [None]

NARRATIVE: CASE EVENT DATE: 20120414
